FAERS Safety Report 4321177-2 (Version None)
Quarter: 2004Q1

REPORT INFORMATION
  Report Type: 
  Country: None (occurrence: None)
  Receive Date: 20040322
  Receipt Date: 20030617
  Transmission Date: 20041129
  Serious: Yes (Hospitalization, Other)
  Sender: FDA-Public Use
  Company Number: WAES 0306USA02098

PATIENT
  Age: 67 Year
  Sex: Female
  Weight: 91 kg

DRUGS (15)
  1. TYLENOL (CAPLET) [Concomitant]
     Dates: start: 19991201
  2. Z-PAK [Concomitant]
  3. CIPRO [Concomitant]
  4. DIURETIC (UNSPECIFIED) [Concomitant]
     Dates: start: 19980701, end: 20020101
  5. DYAZIDE [Concomitant]
     Dates: end: 20020107
  6. ADVIL [Concomitant]
     Dates: start: 19991201, end: 20020107
  7. PREVACID [Concomitant]
     Indication: DYSPEPSIA
  8. ASACOL [Concomitant]
  9. NAPROXEN [Concomitant]
     Dates: start: 19991101, end: 19991201
  10. DITROPAN [Concomitant]
     Indication: MICTURITION URGENCY
  11. QUINIDINE [Concomitant]
  12. QUININE SULFATE [Concomitant]
     Indication: MUSCLE CRAMP
     Dates: start: 20010801, end: 20020101
  13. VIOXX [Suspect]
     Indication: OSTEOARTHRITIS
     Route: 048
     Dates: start: 19991210
  14. VIOXX [Suspect]
     Route: 048
     Dates: start: 20000301, end: 20020107
  15. TRIAMTERENE [Concomitant]
     Indication: HYPERTENSION

REACTIONS (39)
  - ABDOMINAL PAIN [None]
  - ABDOMINAL PAIN UPPER [None]
  - ACUTE MYOCARDIAL INFARCTION [None]
  - ASTHENIA [None]
  - ATELECTASIS [None]
  - BACK INJURY [None]
  - BENIGN BREAST NEOPLASM [None]
  - BLOOD POTASSIUM INCREASED [None]
  - BRONCHITIS [None]
  - CARCINOMA IN SITU OF SKIN [None]
  - CHEST INJURY [None]
  - CHEST PAIN [None]
  - CORONARY ARTERY DISEASE [None]
  - DEEP VEIN THROMBOSIS [None]
  - DIARRHOEA [None]
  - DIZZINESS [None]
  - DRUG HYPERSENSITIVITY [None]
  - DYSPEPSIA [None]
  - ENTEROCELE [None]
  - FALL [None]
  - GASTROINTESTINAL INFECTION [None]
  - GASTROOESOPHAGEAL REFLUX DISEASE [None]
  - HEADACHE [None]
  - HIATUS HERNIA [None]
  - HYPOAESTHESIA [None]
  - INTERVERTEBRAL DISC DEGENERATION [None]
  - LOCALISED OSTEOARTHRITIS [None]
  - MIGRAINE [None]
  - PULMONARY EMBOLISM [None]
  - RADIUS FRACTURE [None]
  - RENAL FAILURE ACUTE [None]
  - RENAL FAILURE CHRONIC [None]
  - ROTATOR CUFF SYNDROME [None]
  - SQUAMOUS CELL CARCINOMA OF SKIN [None]
  - THROMBOSIS [None]
  - TRANSIENT ISCHAEMIC ATTACK [None]
  - ULNA FRACTURE [None]
  - URINARY TRACT INFECTION [None]
  - VISUAL DISTURBANCE [None]
